FAERS Safety Report 11008773 (Version 1)
Quarter: 2015Q2

REPORT INFORMATION
  Report Type: Report from Study
  Country: US (occurrence: None)
  Receive Date: 20150408
  Receipt Date: 20150408
  Transmission Date: 20150821
  Serious: Yes (Hospitalization, Other)
  Sender: FDA-Public Use
  Company Number: 2015AP07738

PATIENT
  Age: 29 Year
  Sex: Female
  Weight: 57 kg

DRUGS (8)
  1. LACTULOSE. [Concomitant]
     Active Substance: LACTULOSE
  2. DESFERAL (DEFEROXAMINE MESILATE) [Concomitant]
  3. OXYCODONE [Concomitant]
     Active Substance: OXYCODONE
  4. FERRIPROX [Suspect]
     Active Substance: DEFERIPRONE
     Indication: HAEMOCHROMATOSIS
     Route: 048
     Dates: start: 20140206, end: 20150305
  5. FOLIC ACID. [Concomitant]
     Active Substance: FOLIC ACID
  6. METOPROLOL TARTRATE. [Concomitant]
     Active Substance: METOPROLOL TARTRATE
  7. FERRIPROX [Suspect]
     Active Substance: DEFERIPRONE
     Indication: SICKLE CELL ANAEMIA
     Route: 048
     Dates: start: 20140206, end: 20150305
  8. LETAIRIS [Concomitant]
     Active Substance: AMBRISENTAN

REACTIONS (5)
  - Catheterisation cardiac [None]
  - Pain [None]
  - Fracture [None]
  - Renal impairment [None]
  - Fall [None]

NARRATIVE: CASE EVENT DATE: 20150310
